FAERS Safety Report 4683177-2 (Version None)
Quarter: 2005Q2

REPORT INFORMATION
  Report Type: 
  Country: None (occurrence: None)
  Receive Date: 20050602
  Receipt Date: 20050405
  Transmission Date: 20051028
  Serious: No
  Sender: FDA-Public Use
  Company Number: USA050494907

PATIENT
  Sex: Female

DRUGS (5)
  1. CYMBALTA [Suspect]
     Indication: NEURALGIA
     Dosage: 80 MG
     Dates: start: 20050201, end: 20050101
  2. NEURONTIN(GABAPENTIN PFIZER) [Concomitant]
  3. TOPAMAX [Concomitant]
  4. OXYCONTIN [Concomitant]
  5. ZANAFLEX [Concomitant]

REACTIONS (2)
  - DEPRESSION [None]
  - PRESCRIBED OVERDOSE [None]
